FAERS Safety Report 9814725 (Version 1)
Quarter: 2014Q1

REPORT INFORMATION
  Report Type: Spontaneous
  Country: BR (occurrence: BR)
  Receive Date: 20140113
  Receipt Date: 20140113
  Transmission Date: 20141002
  Serious: Yes (Other)
  Sender: FDA-Public Use
  Company Number: PHHY2013BR155111

PATIENT
  Age: 78 Year
  Sex: Female

DRUGS (10)
  1. CICLOSPORIN [Suspect]
     Indication: PROPHYLAXIS AGAINST GRAFT VERSUS HOST DISEASE
  2. IDARUBICIN [Suspect]
     Indication: ACUTE MYELOID LEUKAEMIA
  3. CYTARABINE [Suspect]
     Indication: ACUTE MYELOID LEUKAEMIA
  4. MITOXANTRONE [Suspect]
     Indication: ACUTE MYELOID LEUKAEMIA
  5. FLUDARABINE [Concomitant]
  6. MYCOPHENOLATE MOFETIL [Concomitant]
     Indication: PROPHYLAXIS AGAINST GRAFT VERSUS HOST DISEASE
  7. DECITABINE [Concomitant]
     Dosage: 20 MG/M2, FOR 5 DAYS
  8. CYCLOPHOSPHAMIDE [Concomitant]
  9. AZACITIDINE [Concomitant]
     Dosage: 36 MG/M2, UNK
  10. TOPOTECAN [Concomitant]

REACTIONS (2)
  - Graft versus host disease in skin [Recovered/Resolved]
  - Drug ineffective [Unknown]
